FAERS Safety Report 14355984 (Version 3)
Quarter: 2022Q2

REPORT INFORMATION
  Report Type: Spontaneous
  Country: CA (occurrence: CA)
  Receive Date: 20180105
  Receipt Date: 20220419
  Transmission Date: 20220720
  Serious: Yes (Hospitalization, Other)
  Sender: FDA-Public Use
  Company Number: E2B_01329563

PATIENT
  Age: 37 Year
  Sex: Male

DRUGS (2)
  1. MESALAMINE [Suspect]
     Active Substance: MESALAMINE
     Indication: Crohn^s disease
     Dosage: UNKNOWN
     Route: 065
     Dates: end: 201703
  2. ENTOCORT [Concomitant]
     Active Substance: BUDESONIDE
     Indication: Crohn^s disease
     Dosage: 9 MILLIGRAM, QD
     Route: 048

REACTIONS (7)
  - Chest pain [Recovered/Resolved]
  - Drug hypersensitivity [Unknown]
  - Iron deficiency anaemia [Not Recovered/Not Resolved]
  - Myocarditis [Recovered/Resolved]
  - Crohn^s disease [Unknown]
  - Crohn^s disease [Unknown]
  - Myocarditis [Recovered/Resolved]

NARRATIVE: CASE EVENT DATE: 20170301
